FAERS Safety Report 13460777 (Version 1)
Quarter: 2017Q2

REPORT INFORMATION
  Report Type: Spontaneous
  Country: US (occurrence: US)
  Receive Date: 20170419
  Receipt Date: 20170419
  Transmission Date: 20170830
  Serious: Yes (Hospitalization)
  Sender: FDA-Public Use
  Company Number: None

PATIENT
  Age: 64 Year
  Sex: Female

DRUGS (11)
  1. HYDRALAZINE [Concomitant]
     Active Substance: HYDRALAZINE HYDROCHLORIDE
  2. XELODA [Suspect]
     Active Substance: CAPECITABINE
     Indication: CARCINOID TUMOUR
     Route: 048
     Dates: start: 20160323
  3. AMLODIPINE [Concomitant]
     Active Substance: AMLODIPINE BESYLATE
  4. ASPIRIN. [Concomitant]
     Active Substance: ASPIRIN
  5. XELODA [Suspect]
     Active Substance: CAPECITABINE
     Indication: CARCINOID TUMOUR
     Route: 048
     Dates: start: 20160323
  6. LISINOPRIL. [Concomitant]
     Active Substance: LISINOPRIL
  7. FUROSEMIDE. [Concomitant]
     Active Substance: FUROSEMIDE
  8. LAN [Concomitant]
  9. ATORVASTATIN [Concomitant]
     Active Substance: ATORVASTATIN
  10. VITAMIN D3 [Concomitant]
     Active Substance: CHOLECALCIFEROL
  11. GABAPENTINE [Concomitant]
     Active Substance: GABAPENTIN

REACTIONS (1)
  - Hospitalisation [None]
